FAERS Safety Report 5678207-5 (Version None)
Quarter: 2008Q1

REPORT INFORMATION
  Report Type: 
  Country: None (occurrence: None)
  Receive Date: 20080324
  Receipt Date: 20080324
  Transmission Date: 20080703
  Serious: Yes (Hospitalization)
  Sender: FDA-Public Use
  Company Number: None

PATIENT
  Age: 40 Year
  Sex: Male

DRUGS (1)
  1. VARENICLINE 1MG PFIZER [Suspect]
     Indication: TOBACCO USER
     Dosage: 1MG BID PO
     Route: 048
     Dates: start: 20080211, end: 20080301

REACTIONS (3)
  - APHASIA [None]
  - NAUSEA [None]
  - POSTURING [None]
